FAERS Safety Report 11910655 (Version 1)
Quarter: 2016Q1

REPORT INFORMATION
  Report Type: Spontaneous
  Country: FR (occurrence: FR)
  Receive Date: 20160112
  Receipt Date: 20160112
  Transmission Date: 20160526
  Serious: Yes (Death, Other)
  Sender: FDA-Public Use
  Company Number: FR-PFIZER INC-2016009427

PATIENT
  Age: 84 Year
  Sex: Female

DRUGS (5)
  1. SOLIAN [Interacting]
     Active Substance: AMISULPRIDE
     Dosage: 100 MG/ML, 100 MG IN THE MORNING, 150 MG AT MIDDAY, 100 MG IN THE EVENING AND 100 MG AT NIGHT
     Route: 065
     Dates: start: 20090608, end: 20151009
  2. CORDARONE [Suspect]
     Active Substance: AMIODARONE HYDROCHLORIDE
     Indication: ATRIAL FIBRILLATION
     Dosage: 4 DF, DAILY
     Route: 065
     Dates: start: 20151007, end: 20151008
  3. XEROQUEL [Interacting]
     Active Substance: QUETIAPINE FUMARATE
     Dosage: 300 MG, DAILY
     Route: 048
     Dates: start: 20130203, end: 20151009
  4. ALPRAZOLAM. [Concomitant]
     Active Substance: ALPRAZOLAM
     Dosage: UNK, 3X/DAY
  5. LOVENOX [Concomitant]
     Active Substance: ENOXAPARIN SODIUM
     Dosage: UNK

REACTIONS (5)
  - Drug interaction [Fatal]
  - Cerebrovascular accident [Fatal]
  - Confusional state [Unknown]
  - Tachyarrhythmia [Recovered/Resolved]
  - Off label use [Fatal]

NARRATIVE: CASE EVENT DATE: 20151007
